FAERS Safety Report 6510789-3 (Version None)
Quarter: 2009Q4

REPORT INFORMATION
  Report Type: 
  Country: None (occurrence: None)
  Receive Date: 20091222
  Receipt Date: 20091214
  Transmission Date: 20100525
  Serious: Yes (Death, Hospitalization)
  Sender: FDA-Public Use
  Company Number: US-JNJFOC-20091104708

PATIENT
  Sex: Female

DRUGS (18)
  1. REMICADE [Suspect]
     Dosage: SECOND DOSE
     Route: 042
  2. REMICADE [Suspect]
     Indication: RHEUMATOID ARTHRITIS
     Route: 042
  3. INSULIN [Concomitant]
  4. TAZTIA XT [Concomitant]
  5. ZESTRIL [Concomitant]
  6. COUMADIN [Concomitant]
     Indication: ATRIAL FIBRILLATION
  7. ASPIRIN [Concomitant]
  8. TENORMIN [Concomitant]
  9. METHOTREXATE [Concomitant]
  10. CLEOCIN [Concomitant]
  11. PREDNISONE [Concomitant]
  12. NYSTATIN [Concomitant]
  13. LEVAQUIN [Concomitant]
  14. LINEZOLID [Concomitant]
  15. MORPHINE [Concomitant]
  16. MULTIPLE VITAMIN [Concomitant]
  17. PERCOCET [Concomitant]
  18. REGLAN [Concomitant]

REACTIONS (5)
  - CARDIAC ARREST [None]
  - SEPTIC SHOCK [None]
  - STAPHYLOCOCCAL SEPSIS [None]
  - WOUND INFECTION [None]
  - WOUND NECROSIS [None]
